FAERS Safety Report 6621567-9 (Version None)
Quarter: 2010Q1

REPORT INFORMATION
  Report Type: 
  Country: None (occurrence: None)
  Receive Date: 20100309
  Receipt Date: 20100305
  Transmission Date: 20100710
  Serious: Yes (Other)
  Sender: FDA-Public Use
  Company Number: CH-ABBOTT-10P-151-0629132-00

PATIENT
  Sex: Male

DRUGS (4)
  1. HUMIRA [Suspect]
     Indication: ANKYLOSING SPONDYLITIS
     Dates: start: 20070615, end: 20090409
  2. HUMIRA [Suspect]
     Indication: SPONDYLITIS
  3. METHOTREXATE [Concomitant]
     Indication: PROPHYLAXIS
     Dates: start: 19900615
  4. METHOTREXATE [Concomitant]
     Indication: DISEASE PROGRESSION

REACTIONS (1)
  - POLYNEUROPATHY [None]
